FAERS Safety Report 7980598-7 (Version None)
Quarter: 2011Q4

REPORT INFORMATION
  Report Type: 
  Country: None (occurrence: None)
  Receive Date: 20111214
  Receipt Date: 20111130
  Transmission Date: 20120403
  Serious: Yes (Hospitalization, Other)
  Sender: FDA-Public Use
  Company Number: AU-WATSON-2011-20489

PATIENT
  Age: 48 Year
  Sex: Female

DRUGS (1)
  1. DEPAKOTE [Suspect]
     Indication: CONVULSION
     Dosage: 1500 MG, DAILY
     Route: 065

REACTIONS (2)
  - EOSINOPHILIA [None]
  - PLEURAL EFFUSION [None]
